FAERS Safety Report 9198661 (Version 3)
Quarter: 2013Q2

REPORT INFORMATION
  Report Type: Spontaneous
  Country: US (occurrence: US)
  Receive Date: 20130329
  Receipt Date: 20130412
  Transmission Date: 20140414
  Serious: Yes (Hospitalization)
  Sender: FDA-Public Use
  Company Number: US-JNJFOC-20130312147

PATIENT
  Age: 99 Year
  Sex: Female
  Weight: 74.39 kg

DRUGS (17)
  1. MULTIVITAMINS [Concomitant]
     Route: 065
  2. NORTRIPTYLINE [Concomitant]
     Route: 065
  3. PERCOCET [Concomitant]
     Route: 065
  4. MIRALAX [Concomitant]
     Route: 065
  5. SENNA [Concomitant]
     Route: 065
  6. XARELTO [Suspect]
     Indication: THROMBOSIS PROPHYLAXIS
     Route: 048
     Dates: start: 20121026, end: 20121108
  7. TYLENOL [Concomitant]
     Route: 065
  8. AMLODIPINE [Concomitant]
     Route: 065
  9. DULCOLAX [Concomitant]
     Route: 065
  10. CALCIUM AND VITAMIN D [Concomitant]
     Route: 065
  11. VITAMIN B12 [Concomitant]
     Route: 065
  12. FERROUS SULPHATE [Concomitant]
     Route: 065
  13. DOCUSATE [Concomitant]
     Route: 065
  14. FUROSEMIDE [Concomitant]
     Route: 065
  15. INSULIN [Concomitant]
     Route: 065
  16. LEVOTHYROXINE [Concomitant]
     Route: 065
  17. MIRTAZAPINE [Concomitant]
     Route: 065

REACTIONS (1)
  - Gastrointestinal haemorrhage [Unknown]
